FAERS Safety Report 12540243 (Version 1)
Quarter: 2016Q3

REPORT INFORMATION
  Report Type: Spontaneous
  Country: NL (occurrence: NL)
  Receive Date: 20160708
  Receipt Date: 20160708
  Transmission Date: 20161109
  Serious: Yes (Other)
  Sender: FDA-Public Use
  Company Number: NL-PFIZER INC-2016334227

PATIENT
  Age: 67 Year
  Sex: Female

DRUGS (3)
  1. ATORVASTATINE OMHULD [Concomitant]
     Dosage: 20 MG, QD
     Route: 048
     Dates: start: 20020403
  2. PANTOPRAZOLE [Suspect]
     Active Substance: PANTOPRAZOLE SODIUM
     Indication: GASTROOESOPHAGEAL REFLUX DISEASE
     Dosage: 40 MG, BID
     Route: 048
     Dates: start: 20160614, end: 20160617
  3. EZETROL [Concomitant]
     Active Substance: EZETIMIBE
     Dosage: 10 MG, QD
     Route: 048
     Dates: start: 20160614

REACTIONS (6)
  - Urinary retention [Recovered/Resolved]
  - Neck pain [Recovered/Resolved]
  - Pyrexia [Recovered/Resolved]
  - Headache [Recovered/Resolved]
  - Renal pain [Recovered/Resolved]
  - Malaise [Recovered/Resolved]

NARRATIVE: CASE EVENT DATE: 20160615
